FAERS Safety Report 11031917 (Version 1)
Quarter: 2015Q2

REPORT INFORMATION
  Report Type: Spontaneous
  Country: US (occurrence: US)
  Receive Date: 20150415
  Receipt Date: 20150415
  Transmission Date: 20150821
  Serious: No
  Sender: FDA-Public Use
  Company Number: US-ELI_LILLY_AND_COMPANY-US201504004419

PATIENT
  Age: 77 Year
  Sex: Female

DRUGS (2)
  1. HUMALOG [Suspect]
     Active Substance: INSULIN LISPRO
     Indication: TYPE 2 DIABETES MELLITUS
     Dosage: 11 U, EACH MORNING
     Route: 065
  2. HUMALOG [Suspect]
     Active Substance: INSULIN LISPRO
     Dosage: 23 U, EACH EVENING
     Route: 065

REACTIONS (5)
  - Blood glucose increased [Unknown]
  - Dizziness [Unknown]
  - Weight increased [Unknown]
  - Drug dose omission [Unknown]
  - Swelling [Unknown]

NARRATIVE: CASE EVENT DATE: 20150411
